FAERS Safety Report 5450180-4 (Version None)
Quarter: 2007Q3

REPORT INFORMATION
  Report Type: 
  Country: None (occurrence: None)
  Receive Date: 20070912
  Receipt Date: 20070903
  Transmission Date: 20080115
  Serious: Yes (Other)
  Sender: FDA-Public Use
  Company Number: PHHO2007BR14718

PATIENT
  Age: 88 Year
  Sex: Female
  Weight: 78 kg

DRUGS (6)
  1. CALCIUM SANDOZ [Concomitant]
     Indication: OSTEOPOROSIS
     Dosage: 1 TABLET, QD
  2. ALENDRONATE SODIUM [Concomitant]
     Indication: OSTEOPOROSIS
     Dosage: 1 SACHET, QD
  3. VOLTAREN [Concomitant]
     Indication: BONE PAIN
     Dosage: 50MG, PRN
  4. RYTHMOL [Concomitant]
     Indication: ARRHYTHMIA
     Dosage: 1/2 TABLET, BID
  5. DIOVAN [Suspect]
     Indication: HYPERTENSION
     Dosage: 160 MG, QD
     Route: 048
  6. AAS [Concomitant]
     Indication: CEREBROVASCULAR ACCIDENT PROPHYLAXIS
     Dosage: 2 TABLETS, QD

REACTIONS (2)
  - BLOOD GLUCOSE INCREASED [None]
  - BLOOD PRESSURE INCREASED [None]
